FAERS Safety Report 6492605-1 (Version None)
Quarter: 2009Q4

REPORT INFORMATION
  Report Type: 
  Country: None (occurrence: None)
  Receive Date: 20091211
  Receipt Date: 20091211
  Transmission Date: 20100525
  Serious: Yes (Other)
  Sender: FDA-Public Use
  Company Number: None

PATIENT
  Sex: Female
  Weight: 65.7716 kg

DRUGS (1)
  1. LEVOTHYROXINE SODIUM [Suspect]
     Indication: THYROID DISORDER
     Dosage: 125 MG EVERY MORN
     Dates: start: 20091105, end: 20091116

REACTIONS (5)
  - ABDOMINAL DISCOMFORT [None]
  - COUGH [None]
  - INSOMNIA [None]
  - MYALGIA [None]
  - PRODUCT SUBSTITUTION ISSUE [None]
